FAERS Safety Report 26157424 (Version 1)
Quarter: 2025Q4

REPORT INFORMATION
  Report Type: Spontaneous
  Country: EU (occurrence: EU)
  Receive Date: 20251215
  Receipt Date: 20251215
  Transmission Date: 20260118
  Serious: Yes (Hospitalization)
  Sender: MYLAN
  Company Number: EU-MYLANLABS-2025M1104087

PATIENT
  Age: 40 Year
  Sex: Female

DRUGS (20)
  1. AMIODARONE [Suspect]
     Active Substance: AMIODARONE
     Indication: Ventricular tachycardia
     Dosage: UNK
  2. AMIODARONE [Suspect]
     Active Substance: AMIODARONE
     Dosage: UNK
     Route: 065
  3. AMIODARONE [Suspect]
     Active Substance: AMIODARONE
     Dosage: UNK
     Route: 065
  4. AMIODARONE [Suspect]
     Active Substance: AMIODARONE
     Dosage: UNK
  5. BENRALIZUMAB [Concomitant]
     Active Substance: BENRALIZUMAB
     Indication: Eosinophilic granulomatosis with polyangiitis
     Dosage: UNK
  6. BENRALIZUMAB [Concomitant]
     Active Substance: BENRALIZUMAB
     Indication: Antineutrophil cytoplasmic antibody positive
     Dosage: UNK
     Route: 065
  7. BENRALIZUMAB [Concomitant]
     Active Substance: BENRALIZUMAB
     Indication: Antineutrophil cytoplasmic antibody positive
     Dosage: UNK
     Route: 065
  8. BENRALIZUMAB [Concomitant]
     Active Substance: BENRALIZUMAB
     Dosage: UNK
  9. METHYLPREDNISOLONE [Concomitant]
     Active Substance: METHYLPREDNISOLONE
     Indication: Optic ischaemic neuropathy
     Dosage: UNK
  10. METHYLPREDNISOLONE [Concomitant]
     Active Substance: METHYLPREDNISOLONE
     Dosage: UNK
     Route: 042
  11. METHYLPREDNISOLONE [Concomitant]
     Active Substance: METHYLPREDNISOLONE
     Dosage: UNK
     Route: 042
  12. METHYLPREDNISOLONE [Concomitant]
     Active Substance: METHYLPREDNISOLONE
     Dosage: UNK
  13. Immunoglobulin [Concomitant]
     Indication: Optic ischaemic neuropathy
     Dosage: UNK
  14. Immunoglobulin [Concomitant]
     Dosage: UNK
     Route: 042
  15. Immunoglobulin [Concomitant]
     Dosage: UNK
     Route: 042
  16. Immunoglobulin [Concomitant]
     Dosage: UNK
  17. ENOXAPARIN [Concomitant]
     Active Substance: ENOXAPARIN
     Indication: Anticoagulant therapy
     Dosage: UNK
  18. ENOXAPARIN [Concomitant]
     Active Substance: ENOXAPARIN
     Dosage: UNK
     Route: 065
  19. ENOXAPARIN [Concomitant]
     Active Substance: ENOXAPARIN
     Dosage: UNK
     Route: 065
  20. ENOXAPARIN [Concomitant]
     Active Substance: ENOXAPARIN
     Dosage: UNK

REACTIONS (2)
  - Drug ineffective [Unknown]
  - Hypotension [Unknown]

NARRATIVE: CASE EVENT DATE: 20240101
